FAERS Safety Report 6718496-9 (Version None)
Quarter: 2010Q2

REPORT INFORMATION
  Report Type: 
  Country: None (occurrence: None)
  Receive Date: 20100503
  Receipt Date: 20100423
  Transmission Date: 20101027
  Serious: Yes (Hospitalization, Other)
  Sender: FDA-Public Use
  Company Number: FABR-1000162

PATIENT
  Sex: Male
  Weight: 50 kg

DRUGS (2)
  1. FABRAZYME [Suspect]
     Indication: FABRY'S DISEASE
     Dosage: 45 MG, Q2W, INTRAVENOUS
     Route: 042
     Dates: start: 20071001
  2. VALCYTE [Suspect]
     Indication: INFECTION
     Dates: start: 20080301

REACTIONS (6)
  - CYTOMEGALOVIRUS INFECTION [None]
  - INCORRECT DOSE ADMINISTERED [None]
  - INFECTION IN AN IMMUNOCOMPROMISED HOST [None]
  - RENAL FAILURE [None]
  - RENAL TRANSPLANT [None]
  - WHITE BLOOD CELL COUNT DECREASED [None]
